FAERS Safety Report 4696720-4 (Version None)
Quarter: 2005Q2

REPORT INFORMATION
  Report Type: 
  Country: None (occurrence: None)
  Receive Date: 20050620
  Receipt Date: 20050608
  Transmission Date: 20051028
  Serious: Yes (Other)
  Sender: FDA-Public Use
  Company Number: A-US2005-08964

PATIENT
  Age: 47 Year
  Sex: Female
  Weight: 117.9 kg

DRUGS (17)
  1. TRACLEER [Suspect]
     Indication: PULMONARY HYPERTENSION
     Dosage: SEE IMAGE
     Route: 048
     Dates: start: 20041201, end: 20041226
  2. TRACLEER [Suspect]
     Indication: PULMONARY HYPERTENSION
     Dosage: SEE IMAGE
     Route: 048
     Dates: start: 20041227, end: 20050208
  3. TRACLEER [Suspect]
     Indication: PULMONARY HYPERTENSION
     Dosage: SEE IMAGE
     Route: 048
     Dates: start: 20050209, end: 20050216
  4. PLAQUENIL [Concomitant]
  5. FOSAMAX [Concomitant]
  6. PREDNISONE [Concomitant]
  7. OSCAL (CALCIUM CARBONATE) [Concomitant]
  8. FUROSEMIDE [Concomitant]
  9. AMITRIPTYLINE (AMITRIPTYLINE) [Concomitant]
  10. TESSALON [Concomitant]
  11. CYCLOBENZAPRINE HCL [Concomitant]
  12. AMLODIPINE [Concomitant]
  13. LEVOTHYROXINE SODIUM [Concomitant]
  14. K-DUR 10 [Concomitant]
  15. OXYGEN (OXYGEN) [Concomitant]
  16. NEXIUM [Concomitant]
  17. SULFA [Concomitant]

REACTIONS (1)
  - HEPATOMEGALY [None]
